FAERS Safety Report 24160383 (Version 1)
Quarter: 2024Q3

REPORT INFORMATION
  Report Type: Spontaneous
  Country: US (occurrence: US)
  Receive Date: 20240801
  Receipt Date: 20240801
  Transmission Date: 20241017
  Serious: Yes (Hospitalization)
  Sender: TEVA
  Company Number: US-TEVA-VS-3225482

PATIENT

DRUGS (8)
  1. CARBOPLATIN [Suspect]
     Active Substance: CARBOPLATIN
     Indication: CNS germinoma
     Dosage: FOR A TOTAL DOSE OF 400?MG/M2 ADMINISTERED 5?MINUTES AFTER OBBBD
     Route: 013
  2. PROPOFOL [Concomitant]
     Active Substance: PROPOFOL
     Indication: General anaesthesia
     Dosage: ON 2?CONSECUTIVE DAYS EVERY 4?WEEKS FOR UP TO 1?YEAR
     Route: 042
  3. ETOPOSIDE [Concomitant]
     Active Substance: ETOPOSIDE
     Indication: CNS germinoma
     Dosage: FOR A TOTAL DOSE OF 400?MG/M2
     Route: 042
  4. ATROPINE [Concomitant]
     Active Substance: ATROPINE
     Indication: Prophylaxis
     Route: 065
  5. CYCLOPHOSPHAMIDE [Concomitant]
     Active Substance: CYCLOPHOSPHAMIDE
     Indication: CNS germinoma
     Dosage: FOR A TOTAL DOSE OF 660?MG/M2 ADMINISTERED 10?MINUTES BEFORE OBBBD
     Route: 042
  6. SALINE [Concomitant]
     Active Substance: SODIUM CHLORIDE
     Indication: Fluid replacement
     Dosage: FOR MINIMUM OF 6H
     Route: 065
  7. DEXTROSE [Concomitant]
     Active Substance: DEXTROSE\DEXTROSE MONOHYDRATE
     Indication: Fluid replacement
     Dosage: FOR MINIMUM OF 6H
     Route: 065
  8. MANNITOL [Concomitant]
     Active Substance: MANNITOL
     Indication: Blood brain barrier disruption therapy
     Dosage: AT A RATE OF 4-10 ML/S FOR 30 SECONDS
     Route: 013

REACTIONS (1)
  - Seizure [Unknown]
